FAERS Safety Report 16945495 (Version 2)
Quarter: 2019Q4

REPORT INFORMATION
  Report Type: Spontaneous
  Country: US (occurrence: US)
  Receive Date: 20191022
  Receipt Date: 20191112
  Transmission Date: 20200122
  Serious: Yes (Hospitalization)
  Sender: FDA-Public Use
  Company Number: US-RECORDATI RARE DISEASES-2075913

PATIENT
  Age: 10 Year
  Sex: Male

DRUGS (1)
  1. CARBAGLU [Suspect]
     Active Substance: CARGLUMIC ACID
     Indication: UREA CYCLE DISORDER
     Dates: start: 20190326

REACTIONS (2)
  - Bone loss [Unknown]
  - Off label use [Unknown]

NARRATIVE: CASE EVENT DATE: 201907
